FAERS Safety Report 8065358-3 (Version None)
Quarter: 2012Q1

REPORT INFORMATION
  Report Type: 
  Country: None (occurrence: None)
  Receive Date: 20120117
  Receipt Date: 20120106
  Transmission Date: 20120608
  Serious: Yes (Hospitalization)
  Sender: FDA-Public Use
  Company Number: 2012SP000271

PATIENT
  Age: 18 Year
  Sex: Female

DRUGS (2)
  1. FLAGYL [Concomitant]
  2. IMPLANON [Suspect]
     Indication: CONTRACEPTION
     Dosage: 1 DF

REACTIONS (1)
  - INFECTIOUS MONONUCLEOSIS [None]
